FAERS Safety Report 5302781-1 (Version None)
Quarter: 2007Q2

REPORT INFORMATION
  Report Type: 
  Country: None (occurrence: None)
  Receive Date: 20070419
  Receipt Date: 20070413
  Transmission Date: 20071010
  Serious: Yes (Disabling)
  Sender: FDA-Public Use
  Company Number: GB-MERCK-0704GBR00016

PATIENT
  Age: 64 Year
  Sex: Female
  Weight: 59 kg

DRUGS (6)
  1. FOSAMAX [Suspect]
     Indication: OSTEOPOROSIS
     Route: 048
     Dates: start: 20040513, end: 20051001
  2. FOSAMAX [Suspect]
     Route: 048
     Dates: start: 20040327, end: 20040424
  3. LEVOTHYROXINE SODIUM [Concomitant]
     Indication: HYPOTHYROIDISM
     Route: 065
     Dates: start: 20000501
  4. LEVOTHYROXINE SODIUM [Concomitant]
     Route: 065
     Dates: start: 20000501
  5. CALCIUM CARBONATE AND CHOLECALCIFEROL [Concomitant]
     Indication: OSTEOPOROSIS
     Route: 065
     Dates: start: 20051001
  6. IBANDRONATE SODIUM [Suspect]
     Indication: OSTEOPOROSIS
     Route: 065
     Dates: start: 20051008, end: 20061101

REACTIONS (3)
  - FACIAL PAIN [None]
  - HEADACHE [None]
  - MACULAR HOLE [None]
